FAERS Safety Report 9717218 (Version 1)
Quarter: 2013Q4

REPORT INFORMATION
  Report Type: Spontaneous
  Country: US (occurrence: US)
  Receive Date: 20131127
  Receipt Date: 20131127
  Transmission Date: 20140711
  Serious: No
  Sender: FDA-Public Use
  Company Number: US-009507513-1311USA006241

PATIENT
  Sex: Female
  Weight: 99.77 kg

DRUGS (1)
  1. IMPLANON [Suspect]
     Indication: CONTRACEPTION
     Dosage: UNK
     Dates: start: 20130208

REACTIONS (6)
  - Weight increased [Unknown]
  - Dyspnoea [Unknown]
  - Chest pain [Unknown]
  - Chest pain [Unknown]
  - Abdominal pain upper [Unknown]
  - Back pain [Unknown]
